FAERS Safety Report 9795252 (Version 2)
Quarter: 2014Q1

REPORT INFORMATION
  Report Type: Spontaneous
  Country: US (occurrence: US)
  Receive Date: 20140103
  Receipt Date: 20140123
  Transmission Date: 20141002
  Serious: Yes (Other)
  Sender: FDA-Public Use
  Company Number: US-ROCHE-1328788

PATIENT
  Age: 73 Year
  Sex: Female
  Weight: 71.28 kg

DRUGS (3)
  1. XOLAIR [Suspect]
     Indication: ASTHMA
     Route: 030
     Dates: start: 20130219
  2. XOPENEX HFA [Concomitant]
     Dosage: 2 PUFFS
     Route: 055
  3. XYZAL [Concomitant]
     Dosage: 1 AT NIGHT
     Route: 048

REACTIONS (3)
  - Abasia [Unknown]
  - Arthralgia [Unknown]
  - Synovial cyst [Unknown]
